FAERS Safety Report 5881625-3 (Version None)
Quarter: 2008Q3

REPORT INFORMATION
  Report Type: 
  Country: None (occurrence: None)
  Receive Date: 20080912
  Receipt Date: 20080702
  Transmission Date: 20090109
  Serious: No
  Sender: FDA-Public Use
  Company Number: US-ABBOTT-08P-163-0461398-00

PATIENT
  Sex: Female
  Weight: 72.64 kg

DRUGS (9)
  1. HUMIRA [Suspect]
     Indication: RHEUMATOID ARTHRITIS
     Route: 050
     Dates: start: 20050901
  2. TRAMADOL HCL [Concomitant]
     Indication: ARTHRALGIA
     Dosage: 50MG - 2 TABLETS TWICE A DAY
     Route: 048
     Dates: start: 19960101
  3. OMEPRAZOLE MAGNESIUM [Concomitant]
     Indication: ABDOMINAL PAIN UPPER
     Route: 048
     Dates: start: 19991001
  4. SPIRONOLACTONE [Concomitant]
     Indication: FLUID RETENTION
     Route: 048
     Dates: start: 20030706
  5. ALBUTEROL SPIROS [Concomitant]
     Indication: ASTHMA
     Route: 055
     Dates: start: 20060401
  6. RISEDRONATE SODIUM [Concomitant]
     Indication: OSTEOPOROSIS
     Route: 048
     Dates: start: 20060201
  7. PREGABALIN [Concomitant]
     Indication: FIBROMYALGIA
     Route: 048
     Dates: start: 20080101
  8. VENLAFAXINE HCL [Concomitant]
     Indication: ANXIETY
     Route: 048
     Dates: start: 20080524
  9. DEPROVERA [Concomitant]
     Indication: HOT FLUSH
     Route: 050
     Dates: start: 20080409

REACTIONS (2)
  - BACTERIAL INFECTION [None]
  - GASTRITIS [None]
